FAERS Safety Report 4905327-2 (Version None)
Quarter: 2006Q1

REPORT INFORMATION
  Report Type: 
  Country: None (occurrence: None)
  Receive Date: 20060207
  Receipt Date: 20060207
  Transmission Date: 20060701
  Serious: Yes (Hospitalization, Disabling)
  Sender: FDA-Public Use
  Company Number: None

PATIENT
  Age: 74 Year
  Sex: Male
  Weight: 66.36 kg

DRUGS (2)
  1. BENZOCAINE SPRAY 20%  2 OZ [Suspect]
     Indication: LOCAL ANAESTHESIA
     Dosage: SPRAY ORALLY       TOP
     Route: 061
     Dates: start: 20051220, end: 20051220
  2. LIDOCAINE HCL VISCOUS [Concomitant]

REACTIONS (8)
  - CYANOSIS [None]
  - ELECTROLYTE IMBALANCE [None]
  - HYPERKALAEMIA [None]
  - HYPOXIA [None]
  - LOSS OF CONSCIOUSNESS [None]
  - METHAEMOGLOBINAEMIA [None]
  - RENAL FAILURE ACUTE [None]
  - RETCHING [None]
